FAERS Safety Report 9991874 (Version 1)
Quarter: 2014Q1

REPORT INFORMATION
  Report Type: Spontaneous
  Country: US (occurrence: US)
  Receive Date: 20140310
  Receipt Date: 20140310
  Transmission Date: 20141002
  Serious: Yes (Other)
  Sender: FDA-Public Use
  Company Number: US-BAYER-2014-033948

PATIENT
  Age: 20 Year
  Sex: Female
  Weight: 58.96 kg

DRUGS (13)
  1. YAZ [Suspect]
  2. MOTRIN [Concomitant]
  3. IBUPROFEN [Concomitant]
     Dosage: 800 MG, UNK
     Route: 048
  4. CETIRIZINE [Concomitant]
     Dosage: 10 MG, UNK
     Route: 048
  5. MONTELUKAST [Concomitant]
     Dosage: 10 MG, UNK
     Route: 048
  6. MOMETASONE [Concomitant]
     Dosage: 50 MCG
     Route: 045
  7. HYDROCODONE W/APAP [Concomitant]
     Dosage: 5-500
     Route: 048
  8. TORADOL [Concomitant]
     Dosage: 30 MG, UNK
     Route: 042
     Dates: start: 20110502
  9. PHENERGAN [Concomitant]
     Dosage: 25 MG, UNK
     Route: 042
     Dates: start: 20110502
  10. PROTONIX [Concomitant]
     Dosage: 40 MG, UNK
     Route: 042
     Dates: start: 20110502
  11. BENTYL [Concomitant]
     Dosage: 20 MG, UNK
     Route: 048
     Dates: start: 20110502
  12. ONDANSETRON [Concomitant]
     Dosage: 4 MG, UNK
     Route: 048
     Dates: start: 20110502
  13. FERROUS SULFATE [Concomitant]
     Dosage: 325 MG, UNK
     Route: 048
     Dates: start: 20110510

REACTIONS (1)
  - Thrombophlebitis superficial [None]
